FAERS Safety Report 18272841 (Version 1)
Quarter: 2020Q3

REPORT INFORMATION
  Report Type: Spontaneous
  Country: US (occurrence: US)
  Receive Date: 20200916
  Receipt Date: 20200916
  Transmission Date: 20201103
  Serious: No
  Sender: FDA-Public Use
  Company Number: US-BIODELIVERY SCIENCES INTERNATIONAL-2020BDSI0437

PATIENT
  Age: 40 Year
  Sex: Female
  Weight: 81.72 kg

DRUGS (5)
  1. BUPRENORPHINE. [Suspect]
     Active Substance: BUPRENORPHINE
     Indication: PAIN
     Route: 002
     Dates: start: 20200622, end: 2020
  2. BUPRENORPHINE. [Suspect]
     Active Substance: BUPRENORPHINE
     Route: 002
     Dates: start: 2020
  3. DEXTROAMPHET SACCHARAT, AMPHET ASPARTATE, DEXTROAMPHET SULFATE AND AMPHET SULFAT [Concomitant]
     Active Substance: AMPHETAMINE ASPARTATE\AMPHETAMINE SULFATE\DEXTROAMPHETAMINE SACCHARATE\DEXTROAMPHETAMINE SULFATE
     Indication: SHORT-BOWEL SYNDROME
     Route: 048
  4. BUPRENORPHINE. [Suspect]
     Active Substance: BUPRENORPHINE
     Route: 002
     Dates: start: 2020
  5. BUPRENORPHINE. [Suspect]
     Active Substance: BUPRENORPHINE
     Route: 002
     Dates: start: 20200622, end: 2020

REACTIONS (6)
  - Wrong technique in product usage process [Recovered/Resolved]
  - Therapeutic response decreased [Unknown]
  - Product adhesion issue [Unknown]
  - Incorrect route of product administration [Recovered/Resolved]
  - Product solubility abnormal [Unknown]
  - Oral administration complication [Unknown]

NARRATIVE: CASE EVENT DATE: 202006
